FAERS Safety Report 17285577 (Version 3)
Quarter: 2020Q1

REPORT INFORMATION
  Report Type: Spontaneous
  Country: JP (occurrence: JP)
  Receive Date: 20200117
  Receipt Date: 20200224
  Transmission Date: 20200409
  Serious: Yes (Hospitalization, Other)
  Sender: FDA-Public Use
  Company Number: JP-AMGEN-JPNSP2020005396

PATIENT
  Age: 75 Year
  Sex: Female
  Weight: 40 kg

DRUGS (5)
  1. EVENITY [Suspect]
     Active Substance: ROMOSOZUMAB-AQQG
     Indication: OSTEOPOROSIS
     Dosage: 210 MILLIGRAM, QMO
     Route: 058
     Dates: start: 2019
  2. AMLODIPINE [AMLODIPINE BESILATE] [Concomitant]
     Active Substance: AMLODIPINE BESYLATE
     Dosage: 5 MILLIGRAM, QD
  3. ATORVASTATIN [ATORVASTATIN CALCIUM] [Concomitant]
     Active Substance: ATORVASTATIN CALCIUM
     Dosage: 5 MILLIGRAM, QD
  4. PREDONINE [Concomitant]
     Active Substance: PREDNISOLONE
     Indication: VASCULITIS
     Dosage: 5 MILLIGRAM, QD
  5. PREDNISOLONE. [Concomitant]
     Active Substance: PREDNISOLONE
     Indication: VASCULITIS
     Dosage: 1 MILLIGRAM, QD

REACTIONS (2)
  - Fall [Unknown]
  - Femur fracture [Recovering/Resolving]

NARRATIVE: CASE EVENT DATE: 20200108
